FAERS Safety Report 20751167 (Version 2)
Quarter: 2022Q2

REPORT INFORMATION
  Report Type: Spontaneous
  Country: US (occurrence: US)
  Receive Date: 20220426
  Receipt Date: 20220511
  Transmission Date: 20220720
  Serious: No
  Sender: FDA-Public Use
  Company Number: US-ORGANON-O2204USA001568

PATIENT
  Age: 19 Year
  Sex: Female

DRUGS (1)
  1. NEXPLANON [Suspect]
     Active Substance: ETONOGESTREL
     Dosage: 1  ROD, 68 MILLIGRAM
     Route: 059
     Dates: start: 202010

REACTIONS (3)
  - Weight increased [Unknown]
  - Complication associated with device [Not Recovered/Not Resolved]
  - Device kink [Not Recovered/Not Resolved]
